FAERS Safety Report 5379906-5 (Version None)
Quarter: 2007Q3

REPORT INFORMATION
  Report Type: 
  Country: None (occurrence: None)
  Receive Date: 20070706
  Receipt Date: 20070627
  Transmission Date: 20080115
  Serious: Yes (Hospitalization)
  Sender: FDA-Public Use
  Company Number: PHFR2007GB02017

PATIENT
  Sex: Female

DRUGS (2)
  1. TEGRETOL [Suspect]
     Dosage: 400 MG, TID
     Route: 048
  2. TEGRETOL [Suspect]
     Dosage: 900MG PER DAY
     Route: 048
     Dates: end: 20060101

REACTIONS (1)
  - CONVERSION DISORDER [None]
